FAERS Safety Report 21863719 (Version 2)
Quarter: 2023Q1

REPORT INFORMATION
  Report Type: Spontaneous
  Country: US (occurrence: US)
  Receive Date: 20230116
  Receipt Date: 20230208
  Transmission Date: 20230417
  Serious: No
  Sender: FDA-Public Use
  Company Number: US-AMGEN-USASP2022226108

PATIENT
  Age: 68 Year
  Sex: Male
  Weight: 97.959 kg

DRUGS (28)
  1. REPATHA [Suspect]
     Active Substance: EVOLOCUMAB
     Indication: Blood cholesterol increased
     Dosage: 420 MILLIGRAM PER 3.5 MILLILITER, QMO
     Route: 058
     Dates: start: 2022
  2. REPATHA [Suspect]
     Active Substance: EVOLOCUMAB
     Dosage: UNK
     Route: 065
  3. WELCHOL [Concomitant]
     Active Substance: COLESEVELAM HYDROCHLORIDE
     Indication: Product used for unknown indication
     Dosage: 625 MILLIGRAM, BID, 3 TABLETS WITH MEALS
     Route: 048
  4. HERBALS\SPIRULINA [Concomitant]
     Active Substance: HERBALS\SPIRULINA
  5. VITAMIN B COMPLEX [Concomitant]
     Active Substance: CYANOCOBALAMIN\DEXPANTHENOL\NIACINAMIDE\PYRIDOXINE HYDROCHLORIDE\RIBOFLAVIN 5^-PHOSPHATE SODIUM\THIA
  6. LEVOTHYROXINE SODIUM [Concomitant]
     Active Substance: LEVOTHYROXINE SODIUM
     Dosage: 25 MICROGRAM, QD, 1 TABLET IN THE MORNING ON AN EMPTY STOMACH
     Route: 048
  7. LYSINE [Concomitant]
     Active Substance: LYSINE
     Dosage: 500 MILLIGRAM
     Route: 048
  8. MACA ROOT [Concomitant]
  9. ZINC [Concomitant]
     Active Substance: ZINC
     Dosage: 50 MILLIGRAM, QD
     Route: 048
  10. VITAMIN D3 [Concomitant]
     Active Substance: CHOLECALCIFEROL
     Dosage: 250 MICROGRAM, (10000 UT)
     Route: 048
  11. FENUGREEK SEED [Concomitant]
     Active Substance: FENUGREEK SEED
     Dosage: 610 MILLIGRAM
     Route: 048
  12. PANTOPRAZOLE SODIUM [Concomitant]
     Active Substance: PANTOPRAZOLE SODIUM
     Dosage: 40 MILLIGRAM, QD, DELAYED RELEASE, 1 TABLET
     Route: 048
  13. HYDRALAZINE HCL [Concomitant]
     Active Substance: HYDRALAZINE HYDROCHLORIDE
     Dosage: 25 MILLIGRAM, QD, 1 TABLET WITH FOOD
     Route: 048
  14. BYSTOLIC [Concomitant]
     Active Substance: NEBIVOLOL HYDROCHLORIDE
     Indication: Hypertension
     Dosage: 20 MILLIGRAM, QD, 1 TABLET
     Route: 048
  15. BYSTOLIC [Concomitant]
     Active Substance: NEBIVOLOL HYDROCHLORIDE
     Dosage: 10 MILLIGRAM, QD , 1 TABLET
     Route: 048
  16. LIDOCAINE [Concomitant]
     Active Substance: LIDOCAINE
     Dosage: 5 PERCENT PATCH 1 PATCH REMOVE AFTER 12 HOURS EXTERNALLY
  17. TESTOSTERONE [Concomitant]
     Active Substance: TESTOSTERONE
     Dosage: 25 MILLIGRAM PER 2.5 GM, (1%) GEL 2 PACKETS TO SKIN IN THE MORNING TO SHOULDER, UPPER ARMS OR ABDOME
     Route: 048
  18. TADALAFIL [Concomitant]
     Active Substance: TADALAFIL
     Dosage: 20 MILLIGRAM, 1 TABLET
     Route: 048
  19. NIACIN [Concomitant]
     Active Substance: NIACIN
     Dosage: 500 MILLIGRAM, QD, 1 TABLET WITH FOOD
     Route: 048
  20. ALFUZOSIN HYDROCHLORIDE [Concomitant]
     Active Substance: ALFUZOSIN HYDROCHLORIDE
     Dosage: 10 MILLIGRAM, QD, EXTENDED RELEASE 24 HOUR 1 TABLET IMMEDIATELY AFTER THE SAME MEAL
     Route: 048
  21. SYMBICORT [Concomitant]
     Active Substance: BUDESONIDE\FORMOTEROL FUMARATE DIHYDRATE
     Dosage: 160-4.5 MCG/ACT 2 PUFFS INHALATION, BID,
  22. ALBUTEROL SULFATE [Concomitant]
     Active Substance: ALBUTEROL SULFATE
     Dosage: 108 (90 BASE) MCG/ACT, 1 PUFF AS NEEDED INHALATION
  23. HYDROCHLOROTHIAZIDE [Concomitant]
     Active Substance: HYDROCHLOROTHIAZIDE
     Dosage: 25 MILLIGRAM, QD, 1 TABLET IN THE MORNING
     Route: 048
  24. NIFEDIPINE [Concomitant]
     Active Substance: NIFEDIPINE
     Dosage: 60 MILLIGRAM, BID, EXTENDED RELEASE 24 HOUR 1 TABLET ON AN EMPTY STOMACH
     Route: 048
  25. GLIMEPIRIDE [Concomitant]
     Active Substance: GLIMEPIRIDE
     Dosage: 1 MILLIGRAM, BID, TABLET WITH BREAKFAST OR THE FIRST MAIN MEAL OF THE DAY
  26. TEKTURNA [Concomitant]
     Active Substance: ALISKIREN HEMIFUMARATE
     Dosage: 300 MILLIGRAM, QD, 1 TABLET
  27. ALLOPURINOL [Concomitant]
     Active Substance: ALLOPURINOL
     Dosage: 100 MILLIGRAM, QD, 1 TABLET
  28. CRESTOR [Concomitant]
     Active Substance: ROSUVASTATIN CALCIUM
     Indication: Peripheral arterial occlusive disease
     Dosage: 10 MILLIGRAM, QD, 1 TABLET , 30 DAYS
     Route: 048

REACTIONS (3)
  - Drug dose omission by device [Unknown]
  - Wrong technique in product usage process [Unknown]
  - Rash [Unknown]

NARRATIVE: CASE EVENT DATE: 20221227
